FAERS Safety Report 6357023-5 (Version None)
Quarter: 2009Q3

REPORT INFORMATION
  Report Type: 
  Country: None (occurrence: None)
  Receive Date: 20090915
  Receipt Date: 20081111
  Transmission Date: 20100115
  Serious: No
  Sender: FDA-Public Use
  Company Number: US-ABBOTT-08P-163-0487288-00

PATIENT
  Sex: Female

DRUGS (4)
  1. DEPAKOTE [Suspect]
     Indication: CONVULSION
     Dosage: 375MG OF SPRINKLES IN AM AND 250MG IN EVENING
     Route: 048
     Dates: start: 20080401
  2. OXCARBAZEPINE [Concomitant]
     Indication: CONVULSION
  3. DIASTAT [Concomitant]
     Indication: CONVULSION
  4. TOPIRAMATE [Concomitant]
     Indication: CONVULSION

REACTIONS (2)
  - CONVULSION [None]
  - MEDICATION RESIDUE [None]
